FAERS Safety Report 13600884 (Version 1)
Quarter: 2017Q2

REPORT INFORMATION
  Report Type: Spontaneous
  Country: FR (occurrence: FR)
  Receive Date: 20170601
  Receipt Date: 20170601
  Transmission Date: 20170830
  Serious: Yes (Hospitalization)
  Sender: FDA-Public Use
  Company Number: FR-CLINIGEN GROUP PLC/ CLINIGEN HEALTHCARE LTD-E2B_00004867

PATIENT
  Age: 69 Year
  Sex: Female

DRUGS (4)
  1. FOSCAVIR [Suspect]
     Active Substance: FOSCARNET SODIUM
     Indication: CYTOMEGALOVIRUS INFECTION
     Route: 041
     Dates: start: 20140103, end: 20140117
  2. FOSCAVIR [Suspect]
     Active Substance: FOSCARNET SODIUM
     Route: 041
     Dates: start: 20140221, end: 20140221
  3. FOSCAVIR [Suspect]
     Active Substance: FOSCARNET SODIUM
     Route: 041
     Dates: start: 20140215, end: 20140221
  4. FOSCAVIR [Suspect]
     Active Substance: FOSCARNET SODIUM
     Route: 041
     Dates: start: 20140221

REACTIONS (4)
  - Renal failure [Recovered/Resolved]
  - Accidental overdose [Recovered/Resolved]
  - Blood creatinine increased [Recovered/Resolved]
  - Off label use [Unknown]

NARRATIVE: CASE EVENT DATE: 20140221
